FAERS Safety Report 9656709 (Version 2)
Quarter: 2013Q4

REPORT INFORMATION
  Report Type: Spontaneous
  Country: US (occurrence: US)
  Receive Date: 20131030
  Receipt Date: 20131105
  Transmission Date: 20140711
  Serious: No
  Sender: FDA-Public Use
  Company Number: US-009507513-1310USA012049

PATIENT
  Age: 58 Year
  Sex: Female
  Weight: 68.27 kg

DRUGS (5)
  1. OXYTROL FOR WOMEN [Suspect]
     Indication: URINARY INCONTINENCE
     Dosage: 1 DF, Q4D
     Route: 062
     Dates: start: 20130904, end: 20130918
  2. OXYTROL FOR WOMEN [Suspect]
     Indication: STRESS URINARY INCONTINENCE
  3. PAXIL [Concomitant]
     Indication: PRODUCT USED FOR UNKNOWN INDICATION
     Dosage: UNK, UNKNOWN
  4. TOVIAZ [Concomitant]
     Indication: STRESS URINARY INCONTINENCE
     Dosage: UNK, UNKNOWN
  5. SIMVASTATIN [Concomitant]
     Indication: BLOOD CHOLESTEROL INCREASED
     Dosage: UNK, UNKNOWN

REACTIONS (6)
  - Application site pain [Recovered/Resolved]
  - Application site rash [Recovered/Resolved]
  - Application site erythema [Recovered/Resolved]
  - Condition aggravated [Unknown]
  - Drug ineffective [Unknown]
  - Product adhesion issue [Unknown]
